FAERS Safety Report 12933671 (Version 2)
Quarter: 2016Q4

REPORT INFORMATION
  Report Type: Report from Study
  Country: BR (occurrence: BR)
  Receive Date: 20161111
  Receipt Date: 20161208
  Transmission Date: 20170207
  Serious: Yes (Death, Hospitalization, Other)
  Sender: FDA-Public Use
  Company Number: PHHY2016BR154763

PATIENT
  Age: 48 Year
  Sex: Female
  Weight: 52.3 kg

DRUGS (1)
  1. LDK378 [Suspect]
     Active Substance: CERITINIB
     Indication: LUNG NEOPLASM MALIGNANT
     Dosage: 450 MG, UNK
     Route: 048
     Dates: start: 20160211, end: 20161104

REACTIONS (12)
  - Disorientation [Unknown]
  - Performance status decreased [Fatal]
  - Hyperglycaemia [Unknown]
  - Paresis [Unknown]
  - Dehydration [Unknown]
  - Mucosal inflammation [Unknown]
  - Malignant neoplasm progression [Unknown]
  - Paronychia [Unknown]
  - Lung neoplasm malignant [Unknown]
  - Oedema peripheral [Unknown]
  - Candida infection [Unknown]
  - Oral candidiasis [Unknown]

NARRATIVE: CASE EVENT DATE: 20161027
